FAERS Safety Report 6962216-X (Version None)
Quarter: 2010Q3

REPORT INFORMATION
  Report Type: 
  Country: None (occurrence: None)
  Receive Date: 20100830
  Receipt Date: 20100813
  Transmission Date: 20110219
  Serious: Yes (Other)
  Sender: FDA-Public Use
  Company Number: DSA_43728_2010

PATIENT
  Age: 86 Year
  Sex: Female

DRUGS (1)
  1. ENALAPRIL MALEATE [Suspect]
     Indication: ESSENTIAL HYPERTENSION
     Dosage: (10 MG QD ORAL)
     Route: 048
     Dates: start: 20100314, end: 20100315

REACTIONS (1)
  - ANGIOEDEMA [None]
